FAERS Safety Report 4753442-9 (Version None)
Quarter: 2005Q3

REPORT INFORMATION
  Report Type: 
  Country: None (occurrence: None)
  Receive Date: 20050826
  Receipt Date: 20050411
  Transmission Date: 20060218
  Serious: Yes (Death, Congenital Anomaly)
  Sender: FDA-Public Use
  Company Number: BR-ROCHE-401782

PATIENT
  Age: 1 Hour
  Sex: Female
  Weight: 2.5 kg

DRUGS (1)
  1. ROACUTAN [Suspect]
     Indication: ACNE
     Dates: start: 20030615, end: 20040615

REACTIONS (4)
  - CONGENITAL KYPHOSCOLIOSIS [None]
  - DRUG EXPOSURE DURING PREGNANCY [None]
  - EXOMPHALOS [None]
  - PREGNANCY [None]
